FAERS Safety Report 13113960 (Version 3)
Quarter: 2018Q4

REPORT INFORMATION
  Report Type: Spontaneous
  Country: US (occurrence: US)
  Receive Date: 20170113
  Receipt Date: 20181205
  Transmission Date: 20190204
  Serious: Yes (Other)
  Sender: FDA-Public Use
  Company Number: US-SA-2017SA005262

PATIENT
  Age: 48 Year
  Sex: Female

DRUGS (1)
  1. AUBAGIO [Suspect]
     Active Substance: TERIFLUNOMIDE
     Indication: MULTIPLE SCLEROSIS
     Dosage: UNK UNK,UNK
     Route: 065
     Dates: start: 201501

REACTIONS (6)
  - Pain [Unknown]
  - Gait inability [Unknown]
  - Fatigue [Unknown]
  - Intervertebral disc protrusion [Unknown]
  - Asthenia [Unknown]
  - Multiple sclerosis relapse [Unknown]
